FAERS Safety Report 6933000-8 (Version None)
Quarter: 2010Q3

REPORT INFORMATION
  Report Type: 
  Country: None (occurrence: None)
  Receive Date: 20100819
  Receipt Date: 20100812
  Transmission Date: 20110219
  Serious: Yes (Other)
  Sender: FDA-Public Use
  Company Number: US-GENENTECH-303914

PATIENT
  Age: 75 Year
  Sex: Male

DRUGS (18)
  1. RANIBIZUMAB [Suspect]
     Indication: MACULAR DEGENERATION
     Dosage: UNK
     Route: 031
     Dates: start: 20100331
  2. RANIBIZUMAB [Suspect]
     Dosage: UNK
     Route: 031
     Dates: start: 20090429
  3. EPI-RAD 90 [Suspect]
     Indication: MACULAR DEGENERATION
     Dosage: UNK
     Dates: start: 20100312
  4. PRESERVISION AREDS [Concomitant]
     Indication: VITAMIN SUPPLEMENTATION
     Dosage: UNK
     Dates: start: 19900101
  5. OSTEO BI-FLEX PRODUCT NOS [Concomitant]
     Indication: ARTHRITIS
     Dosage: UNK
     Dates: start: 19921201
  6. CLARITIN [Concomitant]
     Indication: HYPERSENSITIVITY
     Dosage: UNK
     Dates: start: 19980101
  7. BISOPROLOL [Concomitant]
     Indication: HYPERTENSION
     Dosage: UNK
     Dates: start: 20000101
  8. ASPIRIN [Concomitant]
     Indication: CORONARY ARTERY DISEASE
     Dosage: UNK
     Dates: start: 20000101
  9. LEXAPRO [Concomitant]
     Indication: DEPRESSION
     Dosage: UNK
     Dates: start: 20000101
  10. NATROL ESTER-C [Concomitant]
     Indication: VITAMIN SUPPLEMENTATION
  11. NIASPAN [Concomitant]
     Indication: HYPERCHOLESTEROLAEMIA
  12. LOVAZA [Concomitant]
     Indication: VITAMIN SUPPLEMENTATION
     Dosage: UNK
     Dates: start: 20000101
  13. PRILOSEC [Concomitant]
     Indication: PEPTIC ULCER
     Dosage: UNK
     Dates: start: 20000101
  14. TERAZOSIN HCL [Concomitant]
     Indication: HYPERTENSION
     Dosage: UNK
     Dates: start: 20000101
  15. REFRESH EYE DROPS (UNK INGREDIENTS) [Concomitant]
     Indication: KERATOCONJUNCTIVITIS SICCA
     Dosage: UNK
     Dates: start: 20050201
  16. LIPITOR [Concomitant]
     Indication: DYSLIPIDAEMIA
     Dosage: UNK
     Dates: start: 20090101
  17. PLAVIX [Concomitant]
     Indication: CORONARY ARTERY DISEASE
     Dosage: UNK
     Dates: start: 20090101
  18. ACETAMINOPHEN [Concomitant]
     Indication: HEADACHE
     Dosage: UNK
     Dates: start: 20090201

REACTIONS (3)
  - BLINDNESS [None]
  - CATARACT [None]
  - HERPES SIMPLEX OPHTHALMIC [None]
